FAERS Safety Report 16011591 (Version 1)
Quarter: 2019Q1

REPORT INFORMATION
  Report Type: Spontaneous
  Country: US (occurrence: US)
  Receive Date: 20190227
  Receipt Date: 20190227
  Transmission Date: 20190418
  Serious: No
  Sender: FDA-Public Use
  Company Number: US-PFIZER INC-2019080180

PATIENT
  Age: 10 Year
  Sex: Male

DRUGS (5)
  1. GENOTROPIN [Suspect]
     Active Substance: SOMATROPIN
     Indication: LAURENCE-MOON-BARDET-BIEDL SYNDROME
  2. GENOTROPIN [Suspect]
     Active Substance: SOMATROPIN
     Indication: VITAMIN D DEFICIENCY
  3. GENOTROPIN [Suspect]
     Active Substance: SOMATROPIN
     Indication: OBESITY
  4. GENOTROPIN [Suspect]
     Active Substance: SOMATROPIN
     Indication: OPITZ-G/BBB SYNDROME
     Dosage: 1.2 MG, DAILY
  5. GENOTROPIN [Suspect]
     Active Substance: SOMATROPIN
     Indication: RUBINSTEIN-TAYBI SYNDROME

REACTIONS (9)
  - Insulin-like growth factor increased [Unknown]
  - Blood urea nitrogen/creatinine ratio increased [Unknown]
  - Bone density increased [Unknown]
  - Blood urea increased [Unknown]
  - Carbon dioxide decreased [Unknown]
  - Blood cholesterol increased [Unknown]
  - Blood glucose increased [Unknown]
  - Product use in unapproved indication [Unknown]
  - Vitamin D decreased [Unknown]

NARRATIVE: CASE EVENT DATE: 201802
